FAERS Safety Report 9189175 (Version 1)
Quarter: 2013Q1

REPORT INFORMATION
  Report Type: Spontaneous
  Country: US (occurrence: US)
  Receive Date: 20130326
  Receipt Date: 20130326
  Transmission Date: 20140127
  Serious: No
  Sender: FDA-Public Use
  Company Number: US-009507513-1210USA007356

PATIENT
  Sex: Male

DRUGS (2)
  1. AZASITE [Suspect]
     Indication: BLEPHARITIS
     Dosage: 2 DROPS DAILY IN BOTH EYES
     Route: 047
     Dates: start: 201110
  2. AZASITE [Suspect]
     Dosage: 1 DROP TWICW DAILY
     Dates: start: 20120927

REACTIONS (3)
  - Drug ineffective [Unknown]
  - Incorrect drug administration duration [Unknown]
  - No adverse event [Unknown]
